FAERS Safety Report 4974120-7 (Version None)
Quarter: 2006Q1

REPORT INFORMATION
  Report Type: 
  Country: None (occurrence: None)
  Receive Date: 20060130
  Receipt Date: 20050627
  Transmission Date: 20060701
  Serious: No
  Sender: FDA-Public Use
  Company Number: COT-0283_2005

PATIENT
  Age: 45 Year
  Sex: Female
  Weight: 87.0906 kg

DRUGS (11)
  1. VENTAVIS [Suspect]
     Indication: PULMONARY HYPERTENSION
     Dosage: 2.5 MCG ONCE IH
     Dates: start: 20050608, end: 20050608
  2. VENTAVIS [Suspect]
     Indication: PULMONARY HYPERTENSION
     Dosage: 5 MCG 6TO9X/DAY IH
     Dates: start: 20050608
  3. VENTAVIS [Suspect]
     Indication: PULMONARY HYPERTENSION
     Dosage: 5 MCG 6TO9X/DAY IH
     Dates: start: 20050707
  4. VENTAVIS [Suspect]
     Indication: PULMONARY HYPERTENSION
     Dosage: 5 MCG 6TO9X/DAY IH
     Dates: start: 20050707
  5. HYDROXYZINE HYDROCHLORIDE [Concomitant]
  6. PREVACID [Concomitant]
  7. BUTALBITAL [Concomitant]
  8. CARDIZEM CD [Concomitant]
  9. OXAZEPAM [Concomitant]
  10. ASPIRIN [Concomitant]
  11. CENTRUM [Concomitant]

REACTIONS (3)
  - ABDOMINAL PAIN [None]
  - DIARRHOEA [None]
  - FATIGUE [None]
